FAERS Safety Report 26023328 (Version 2)
Quarter: 2025Q4

REPORT INFORMATION
  Report Type: Report from Study
  Country: EU (occurrence: EU)
  Receive Date: 20251110
  Receipt Date: 20251201
  Transmission Date: 20260118
  Serious: Yes (Death)
  Sender: ALEXION PHARMACEUTICALS
  Company Number: EU-AstraZeneca-CH-00986285A

PATIENT
  Sex: Female

DRUGS (3)
  1. DURVALUMAB [Suspect]
     Active Substance: DURVALUMAB
     Indication: Small cell lung cancer extensive stage
     Dosage: UNK, Q3W
     Route: 065
     Dates: start: 202502, end: 202509
  2. ETOPOSIDE [Concomitant]
     Active Substance: ETOPOSIDE
     Dosage: UNK, Q3W
     Route: 065
     Dates: start: 202502, end: 202509
  3. CARBOPLATIN [Concomitant]
     Active Substance: CARBOPLATIN
     Dosage: UNK, Q3W
     Route: 065
     Dates: start: 202502, end: 202509

REACTIONS (1)
  - Death [Fatal]
